FAERS Safety Report 5290324-0 (Version None)
Quarter: 2007Q2

REPORT INFORMATION
  Report Type: 
  Country: None (occurrence: None)
  Receive Date: 20070409
  Receipt Date: 20070329
  Transmission Date: 20071010
  Serious: Yes (Other)
  Sender: FDA-Public Use
  Company Number: US-JNJFOC-20070307003

PATIENT
  Sex: Male
  Weight: 68.04 kg

DRUGS (3)
  1. CONCERTA [Suspect]
     Indication: ATTENTION DEFICIT/HYPERACTIVITY DISORDER
  2. WELLBUTRIN [Suspect]
     Indication: DRUG USE FOR UNKNOWN INDICATION
  3. LEXAPRO [Concomitant]

REACTIONS (6)
  - ANXIETY [None]
  - HYPERVIGILANCE [None]
  - IMPULSE-CONTROL DISORDER [None]
  - IRRITABILITY [None]
  - OBSESSIVE THOUGHTS [None]
  - OVERDOSE [None]
